FAERS Safety Report 7969347 (Version 8)
Quarter: 2013Q3

REPORT INFORMATION
  Report Type: Spontaneous
  Country: US (occurrence: US)
  Receive Date: 20110601
  Receipt Date: 20130809
  Transmission Date: 20140515
  Serious: Yes (Hospitalization, Other)
  Sender: FDA-Public Use
  Company Number: US-ROCHE-778811

PATIENT
  Age: 15 Year
  Sex: Female
  Weight: 57.2 kg

DRUGS (3)
  1. ACCUTANE [Suspect]
     Indication: ACNE CYSTIC
     Route: 065
     Dates: start: 19900717, end: 199012
  2. ACCUTANE [Suspect]
     Route: 065
     Dates: start: 19910102, end: 199206
  3. CHLOROQUINE [Concomitant]
     Dosage: FOR 5 WEEKS
     Route: 065
     Dates: start: 19920401

REACTIONS (21)
  - Colitis ulcerative [Unknown]
  - Pelvic abscess [Unknown]
  - Peritoneal cyst [Unknown]
  - Anaemia [Unknown]
  - Small intestinal obstruction [Unknown]
  - Injury [Unknown]
  - Cerebrovascular accident [Unknown]
  - Eye injury [Unknown]
  - Hypercoagulation [Unknown]
  - Infertility [Unknown]
  - Pouchitis [Unknown]
  - Pelvic adhesions [Recovered/Resolved]
  - Coordination abnormal [Unknown]
  - VIth nerve paralysis [Unknown]
  - Inflammatory bowel disease [Unknown]
  - Intestinal obstruction [Unknown]
  - Intestinal haemorrhage [Unknown]
  - Depression [Unknown]
  - Lip dry [Unknown]
  - Blood cholesterol decreased [Unknown]
  - Blood triglycerides decreased [Unknown]
